FAERS Safety Report 10260456 (Version 1)
Quarter: 2014Q2

REPORT INFORMATION
  Report Type: Spontaneous
  Country: US (occurrence: US)
  Receive Date: 20140625
  Receipt Date: 20140625
  Transmission Date: 20141212
  Serious: Yes (Other)
  Sender: FDA-Public Use
  Company Number: US-ELI_LILLY_AND_COMPANY-US201406007607

PATIENT
  Sex: 0

DRUGS (1)
  1. FLUOXETINE HYDROCHLORIDE [Suspect]
     Indication: PRODUCT USED FOR UNKNOWN INDICATION
     Dosage: UNK
     Route: 064

REACTIONS (6)
  - Premature baby [Unknown]
  - Foetal exposure during pregnancy [Recovered/Resolved]
  - Asthma [Unknown]
  - Attention deficit/hyperactivity disorder [Unknown]
  - Dyslexia [Unknown]
  - Oppositional defiant disorder [Unknown]
